FAERS Safety Report 24194063 (Version 1)
Quarter: 2024Q3

REPORT INFORMATION
  Report Type: Spontaneous
  Country: US (occurrence: None)
  Receive Date: 20240808
  Receipt Date: 20240808
  Transmission Date: 20241016
  Serious: Yes (Disabling, Other)
  Sender: Public
  Company Number: None

PATIENT
  Age: 43 Year
  Sex: Female
  Weight: 72 kg

DRUGS (3)
  1. DYSPORT [Suspect]
     Active Substance: ABOBOTULINUMTOXINA
     Indication: Skin cosmetic procedure
     Dates: start: 20240120
  2. MOUNJARO [Concomitant]
     Active Substance: TIRZEPATIDE
  3. ALPRAZOLAM [Concomitant]
     Active Substance: ALPRAZOLAM

REACTIONS (16)
  - Constipation [None]
  - Food intolerance [None]
  - Anxiety [None]
  - Palpitations [None]
  - Tremor [None]
  - Dyspnoea [None]
  - Hypoaesthesia [None]
  - Lymphadenopathy [None]
  - Palpitations [None]
  - Alopecia [None]
  - Hypoaesthesia oral [None]
  - Tongue discomfort [None]
  - Skin burning sensation [None]
  - Muscle twitching [None]
  - Gingival pain [None]
  - Gingival discomfort [None]

NARRATIVE: CASE EVENT DATE: 20240212
